FAERS Safety Report 9690178 (Version 2)
Quarter: 2013Q4

REPORT INFORMATION
  Report Type: Spontaneous
  Country: US (occurrence: US)
  Receive Date: 20131115
  Receipt Date: 20131226
  Transmission Date: 20140711
  Serious: Yes (Other)
  Sender: FDA-Public Use
  Company Number: PHEH2013US023871

PATIENT
  Sex: Female

DRUGS (10)
  1. VIVELLE DOT [Suspect]
     Dosage: 0.05 MG, BIW
     Route: 062
     Dates: start: 201202
  2. LYRICA [Concomitant]
     Dosage: 150 MG, BID
  3. DHEA [Concomitant]
     Dosage: 25 MG, QD
  4. CARBIDOPA LEVODOPA [Concomitant]
     Indication: RESTLESS LEGS SYNDROME
     Dosage: UNK UKN, UNK
  5. BIOTIN [Concomitant]
     Dosage: 5000 UKN, UNK
  6. VITAMIN D3 [Concomitant]
     Dosage: 1000 UKN, UNK
  7. VITAMIN B 12 [Concomitant]
     Dosage: UNK UKN, UNK
  8. KIRKLAND SIGNATURE VITAMIN E [Concomitant]
     Dosage: UNK UKN, UNK
  9. GLUCOSAMINE + MSM [Concomitant]
     Dosage: UNK UKN, UNK
  10. CALCIUM CITRATE [Concomitant]
     Dosage: 500 MG, UNK

REACTIONS (2)
  - Memory impairment [Unknown]
  - Product adhesion issue [Unknown]
